FAERS Safety Report 6677820-6 (Version None)
Quarter: 2010Q2

REPORT INFORMATION
  Report Type: 
  Country: None (occurrence: None)
  Receive Date: 20100412
  Receipt Date: 20100324
  Transmission Date: 20101027
  Serious: No
  Sender: FDA-Public Use
  Company Number: US-ALEXION-A201000348

PATIENT
  Sex: Female

DRUGS (21)
  1. SOLIRIS [Suspect]
     Dosage: UNK
     Route: 042
  2. IMDUR [Concomitant]
  3. K-DUR [Concomitant]
  4. PRODUR [Concomitant]
  5. ATIVAN [Concomitant]
  6. SINGULAIR [Concomitant]
  7. ASPIRIN [Concomitant]
  8. DIGOXIN [Concomitant]
  9. FOLIC ACID [Concomitant]
  10. ALDACTONE [Concomitant]
  11. LASIX [Concomitant]
  12. MICARDIS [Concomitant]
  13. DELTASYME [Concomitant]
  14. SYNTHROID [Concomitant]
  15. PROZAC                             /00724401/ [Concomitant]
  16. ACYCLOVIR [Concomitant]
  17. PROTONIX                           /01263201/ [Concomitant]
  18. DARVOCET [Concomitant]
  19. PRIMATENE MIST [Concomitant]
  20. ALBUTEROL [Concomitant]
  21. SLOVIR [Concomitant]

REACTIONS (9)
  - CHRONIC OBSTRUCTIVE PULMONARY DISEASE [None]
  - DEPRESSION [None]
  - DYSPNOEA [None]
  - HAEMOGLOBINURIA [None]
  - HAEMOLYSIS [None]
  - NASAL CONGESTION [None]
  - OEDEMA PERIPHERAL [None]
  - SLEEP DISORDER [None]
  - WHEEZING [None]
